FAERS Safety Report 7574784-8 (Version None)
Quarter: 2011Q2

REPORT INFORMATION
  Report Type: 
  Country: None (occurrence: None)
  Receive Date: 20110627
  Receipt Date: 20110624
  Transmission Date: 20111010
  Serious: Yes (Other)
  Sender: FDA-Public Use
  Company Number: US-PFIZER INC-2011141295

PATIENT
  Sex: Male
  Weight: 82 kg

DRUGS (4)
  1. NOVOLOG [Concomitant]
     Indication: DIABETES MELLITUS
     Dosage: 15 IU, 3X/DAY
  2. INSULIN [Concomitant]
     Indication: DIABETES MELLITUS
     Dosage: UNK
  3. LYRICA [Suspect]
     Indication: MUSCLE SPASMS
     Dosage: 50 MG, DAILY
     Route: 048
     Dates: start: 20090101
  4. LYRICA [Suspect]
     Indication: GOUT

REACTIONS (1)
  - RENAL FAILURE [None]
